FAERS Safety Report 15870710 (Version 1)
Quarter: 2019Q1

REPORT INFORMATION
  Report Type: Other
  Country: US (occurrence: US)
  Receive Date: 20190126
  Receipt Date: 20190126
  Transmission Date: 20190417
  Serious: No
  Sender: FDA-Public Use
  Company Number: US-ACORDA-ACO_152980_2018

PATIENT
  Sex: Male

DRUGS (1)
  1. AMPYRA [Suspect]
     Active Substance: DALFAMPRIDINE
     Indication: MULTIPLE SCLEROSIS
     Dosage: 1 TABLET BID
     Route: 048

REACTIONS (5)
  - Therapy cessation [Unknown]
  - Limb discomfort [Unknown]
  - Feeling hot [Unknown]
  - Muscular weakness [Unknown]
  - Pain in extremity [Unknown]
